FAERS Safety Report 4844952-4 (Version None)
Quarter: 2005Q4

REPORT INFORMATION
  Report Type: 
  Country: None (occurrence: None)
  Receive Date: 20051201
  Receipt Date: 20051201
  Transmission Date: 20060501
  Serious: Yes (Life-Threatening, Hospitalization)
  Sender: FDA-Public Use
  Company Number: None

PATIENT
  Age: 43 Year
  Sex: Female
  Weight: 61.2356 kg

DRUGS (1)
  1. KARIVA [Suspect]
     Indication: MENORRHAGIA
     Dosage: ONE TABLET DAILY PO
     Route: 048
     Dates: start: 20050901, end: 20051114

REACTIONS (2)
  - FIBRIN D DIMER INCREASED [None]
  - PULMONARY EMBOLISM [None]
